FAERS Safety Report 9717176 (Version 1)
Quarter: 2013Q4

REPORT INFORMATION
  Report Type: Spontaneous
  Country: US (occurrence: US)
  Receive Date: 20131127
  Receipt Date: 20131127
  Transmission Date: 20140711
  Serious: Yes (Hospitalization)
  Sender: FDA-Public Use
  Company Number: US-B.I. PHARMACEUTICALS,INC./RIDGEFIELD-2013-BI-38998BP

PATIENT
  Sex: Female
  Weight: 54 kg

DRUGS (7)
  1. COMBIVENT [Suspect]
     Indication: ASTHMA
     Dosage: DOSE PER APPLICATION: 18 MCG / 103 MCG; DAILY DOSE: 144 MCG/800 MCG
     Route: 055
     Dates: start: 2003
  2. DUONEB [Concomitant]
     Dosage: FORMULATION: INHALATION SOLUTION
     Route: 055
  3. MOBIC [Concomitant]
     Indication: ARTHRITIS
     Dosage: 15 MG
     Route: 048
  4. NEURONTIN [Concomitant]
     Indication: INTERVERTEBRAL DISC DEGENERATION
     Dosage: 900 MG
     Route: 048
  5. SOMA [Concomitant]
     Indication: INTERVERTEBRAL DISC DEGENERATION
     Dosage: 1050 MG
     Route: 048
  6. SINGULAIR [Concomitant]
     Indication: HYPERSENSITIVITY
     Dosage: 10 MG
     Route: 048
  7. NEXIUM [Concomitant]
     Indication: GASTROOESOPHAGEAL REFLUX DISEASE
     Dosage: 40 MG
     Route: 048

REACTIONS (3)
  - Dyspnoea [Recovered/Resolved]
  - Dyspnoea [Recovered/Resolved]
  - Off label use [Not Recovered/Not Resolved]
